FAERS Safety Report 19737905 (Version 1)
Quarter: 2021Q3

REPORT INFORMATION
  Report Type: Spontaneous
  Country: CN (occurrence: CN)
  Receive Date: 20210824
  Receipt Date: 20210824
  Transmission Date: 20211014
  Serious: Yes (Other)
  Sender: FDA-Public Use
  Company Number: CN-ROCHE-2896168

PATIENT
  Age: 56 Year
  Sex: Male

DRUGS (13)
  1. LENALIDOMIDE [Concomitant]
     Active Substance: LENALIDOMIDE
     Indication: FOLLICULAR LYMPHOMA
  2. DEXAMETHASONE. [Concomitant]
     Active Substance: DEXAMETHASONE
     Indication: FOLLICULAR LYMPHOMA
  3. MABTHERA [Suspect]
     Active Substance: RITUXIMAB
     Indication: FOLLICULAR LYMPHOMA
     Dosage: DAY0
     Route: 065
  4. CYCLOPHOSPHAMIDE. [Concomitant]
     Active Substance: CYCLOPHOSPHAMIDE
     Indication: FOLLICULAR LYMPHOMA
  5. VINCRISTINE [Concomitant]
     Active Substance: VINCRISTINE
     Indication: FOLLICULAR LYMPHOMA
  6. MABTHERA [Suspect]
     Active Substance: RITUXIMAB
     Dosage: DAY0
     Route: 065
  7. VINCRISTINE [Concomitant]
     Active Substance: VINCRISTINE
  8. PREDNISONE. [Concomitant]
     Active Substance: PREDNISONE
     Indication: FOLLICULAR LYMPHOMA
  9. DOXORUBICIN [Concomitant]
     Active Substance: DOXORUBICIN
  10. DEXAMETHASONE. [Concomitant]
     Active Substance: DEXAMETHASONE
  11. MABTHERA [Suspect]
     Active Substance: RITUXIMAB
     Dosage: DAY0
     Route: 065
  12. CYCLOPHOSPHAMIDE. [Concomitant]
     Active Substance: CYCLOPHOSPHAMIDE
  13. DOXORUBICIN [Concomitant]
     Active Substance: DOXORUBICIN
     Indication: FOLLICULAR LYMPHOMA

REACTIONS (1)
  - Myelosuppression [Unknown]
